FAERS Safety Report 5445954-X (Version None)
Quarter: 2007Q3

REPORT INFORMATION
  Report Type: 
  Country: None (occurrence: None)
  Receive Date: 20070907
  Receipt Date: 20070828
  Transmission Date: 20080115
  Serious: Yes (Other)
  Sender: FDA-Public Use
  Company Number: CA-JNJFOC-20070806272

PATIENT
  Sex: Female

DRUGS (2)
  1. REMICADE [Suspect]
     Indication: RHEUMATOID ARTHRITIS
  2. BENADRYL [Concomitant]
     Indication: PREMEDICATION

REACTIONS (5)
  - GAIT DISTURBANCE [None]
  - JOINT SWELLING [None]
  - MOVEMENT DISORDER [None]
  - OEDEMA PERIPHERAL [None]
  - PARAESTHESIA [None]
